FAERS Safety Report 12980214 (Version 1)
Quarter: 2016Q4

REPORT INFORMATION
  Report Type: Report from Study
  Country: None (occurrence: BR)
  Receive Date: 20161128
  Receipt Date: 20161128
  Transmission Date: 20170207
  Serious: Yes (Hospitalization, Disabling, Other)
  Sender: FDA-Public Use
  Company Number: BR-ABBVIE-16K-020-1789410-00

PATIENT
  Age: 69 Year
  Sex: Female
  Weight: 102 kg

DRUGS (3)
  1. DIOVAN [Concomitant]
     Active Substance: VALSARTAN
     Indication: HYPERTENSION
     Route: 048
     Dates: start: 2008
  2. SYNTHROID [Concomitant]
     Active Substance: LEVOTHYROXINE SODIUM
     Indication: HYPOTHYROIDISM
     Route: 048
     Dates: start: 2008
  3. HUMIRA [Suspect]
     Active Substance: ADALIMUMAB
     Indication: RHEUMATOID ARTHRITIS
     Route: 058
     Dates: start: 20160317, end: 201606

REACTIONS (12)
  - Pancreatic disorder [Recovered/Resolved]
  - Mobility decreased [Recovering/Resolving]
  - Syncope [Recovering/Resolving]
  - Hospitalisation [Recovered/Resolved]
  - Hypophagia [Recovering/Resolving]
  - Weight decreased [Recovering/Resolving]
  - Ocular icterus [Recovered/Resolved]
  - Malaise [Unknown]
  - Dysentery [Not Recovered/Not Resolved]
  - Blood pressure decreased [Recovering/Resolving]
  - Vomiting [Recovered/Resolved]
  - Anaemia [Unknown]

NARRATIVE: CASE EVENT DATE: 2016
